FAERS Safety Report 6366943-7 (Version None)
Quarter: 2009Q3

REPORT INFORMATION
  Report Type: 
  Country: None (occurrence: None)
  Receive Date: 20090915
  Receipt Date: 20090902
  Transmission Date: 20100115
  Serious: Yes (Life-Threatening, Hospitalization)
  Sender: FDA-Public Use
  Company Number: DK-000679

PATIENT
  Sex: Female
  Weight: 52 kg

DRUGS (2)
  1. MENOPUR [Suspect]
     Indication: INFERTILITY
     Dosage: THREE INDEPENDENT TREATMENTS WERE INITIATED. FROM 300 TO 450 IE  DAILY; INTRAMUSCULAR
     Route: 030
     Dates: start: 20081101, end: 20090609
  2. FLIXOTIDE [Concomitant]

REACTIONS (6)
  - DIZZINESS [None]
  - DYSPNOEA [None]
  - HEADACHE [None]
  - LARYNGEAL OEDEMA [None]
  - SALIVARY HYPERSECRETION [None]
  - SOMNOLENCE [None]
